FAERS Safety Report 6130751-2 (Version None)
Quarter: 2009Q1

REPORT INFORMATION
  Report Type: 
  Country: None (occurrence: None)
  Receive Date: 20090325
  Receipt Date: 20090318
  Transmission Date: 20090719
  Serious: Yes (Other)
  Sender: FDA-Public Use
  Company Number: US-BAYER-200912130NA

PATIENT
  Age: 57 Year
  Sex: Female

DRUGS (6)
  1. AVELOX [Suspect]
     Indication: ACUTE SINUSITIS
     Dosage: TOTAL DAILY DOSE: 400 MG  UNIT DOSE: 400 MG
     Dates: start: 20081106, end: 20081116
  2. PREVACID [Concomitant]
     Dosage: TOTAL DAILY DOSE: 30 MG
  3. SYNTHROID [Concomitant]
     Dosage: TOTAL DAILY DOSE: 88 ?G
  4. SINGULAIR [Concomitant]
     Dosage: TOTAL DAILY DOSE: 10 MG
  5. CLARITIN-D [Concomitant]
  6. LEXAPRO [Concomitant]
     Dosage: TOTAL DAILY DOSE: 10 MG

REACTIONS (1)
  - LIGAMENT RUPTURE [None]
